FAERS Safety Report 9848401 (Version 2)
Quarter: 2014Q1

REPORT INFORMATION
  Report Type: Spontaneous
  Country: JP (occurrence: JP)
  Receive Date: 20140128
  Receipt Date: 20140131
  Transmission Date: 20141002
  Serious: Yes (Hospitalization)
  Sender: FDA-Public Use
  Company Number: JP-JNJFOC-20140111867

PATIENT
  Age: 84 Year
  Sex: Female

DRUGS (10)
  1. XARELTO [Suspect]
     Indication: ATRIAL FIBRILLATION
     Route: 048
  2. XARELTO [Suspect]
     Indication: CEREBROVASCULAR ACCIDENT PROPHYLAXIS
     Route: 048
  3. ASPENON [Concomitant]
     Route: 048
  4. PLETAAL [Concomitant]
     Route: 048
  5. CARDENALIN [Concomitant]
     Route: 048
  6. ANPLAG [Concomitant]
     Route: 048
  7. NITOROL [Concomitant]
     Route: 048
  8. RENIVACE [Concomitant]
     Route: 048
  9. ARTIST [Concomitant]
     Route: 048
  10. CADUET [Concomitant]
     Route: 048

REACTIONS (1)
  - Pancytopenia [Not Recovered/Not Resolved]
